FAERS Safety Report 9398557 (Version 1)
Quarter: 2013Q3

REPORT INFORMATION
  Report Type: Other
  Country: CN (occurrence: CN)
  Receive Date: 20130712
  Receipt Date: 20130712
  Transmission Date: 20140515
  Serious: Yes (Other)
  Sender: FDA-Public Use
  Company Number: CN-NAPPMUNDI-DEU-2013-0011971

PATIENT
  Age: 93 Year
  Sex: Male

DRUGS (6)
  1. MS CONTIN [Suspect]
     Indication: PROCEDURAL PAIN
     Dosage: 30 MG, SINGLE
     Route: 048
  2. HEPARIN CALCIUM [Concomitant]
     Indication: TRANSIENT ISCHAEMIC ATTACK
  3. ASPIRIN [Concomitant]
     Indication: TRANSIENT ISCHAEMIC ATTACK
  4. NIMODIPINE [Concomitant]
     Indication: TRANSIENT ISCHAEMIC ATTACK
  5. CEFUROXIME                         /00454602/ [Concomitant]
     Indication: PROPHYLAXIS
  6. SOMEDON [Concomitant]
     Indication: PROCEDURAL PAIN
     Dosage: 1.46 G, DAILY

REACTIONS (5)
  - Depressed level of consciousness [Recovered/Resolved]
  - Delirium [Recovered/Resolved]
  - Hypertonia [Recovered/Resolved]
  - Dyskinesia [Recovered/Resolved]
  - Wrong technique in drug usage process [Recovered/Resolved]
